FAERS Safety Report 4795836-1 (Version None)
Quarter: 2005Q4

REPORT INFORMATION
  Report Type: 
  Country: None (occurrence: None)
  Receive Date: 20051007
  Receipt Date: 20050927
  Transmission Date: 20060501
  Serious: Yes (Other)
  Sender: FDA-Public Use
  Company Number: 2005123771

PATIENT
  Age: 85 Year
  Sex: Female
  Weight: 63.5036 kg

DRUGS (10)
  1. ZANTAC 150 [Suspect]
     Indication: DYSPEPSIA
     Dosage: 1 TABLET TWICE, ORAL
     Route: 048
     Dates: start: 20050810, end: 20050903
  2. POTASSIUM         (POTASSIUM) [Concomitant]
  3. REPAGLINIDE (REPAGLINIDE) [Concomitant]
  4. CALCIUM             (CALCIUM) [Concomitant]
  5. HYDROCHLOROTHIAZIDE [Concomitant]
  6. CENTRUM                 (MINERALS NOS, VITAMINS NOS) [Concomitant]
  7. AMLODIPINE BESYLATE [Concomitant]
  8. BENAZEPRIL HCL [Concomitant]
  9. ASPIRIN [Concomitant]
  10. ................... [Concomitant]

REACTIONS (6)
  - DIARRHOEA [None]
  - ERUCTATION [None]
  - FLATULENCE [None]
  - MACULAR DEGENERATION [None]
  - RETINAL DETACHMENT [None]
  - VISUAL DISTURBANCE [None]
